FAERS Safety Report 17943213 (Version 1)
Quarter: 2020Q2

REPORT INFORMATION
  Report Type: Spontaneous
  Country: CA (occurrence: CA)
  Receive Date: 20200625
  Receipt Date: 20200625
  Transmission Date: 20200714
  Serious: Yes (Other)
  Sender: FDA-Public Use
  Company Number: CA-TEVA-2020-CA-1792677

PATIENT
  Age: 35 Year
  Sex: Female

DRUGS (3)
  1. HEPATITIS A VACCINE INACT/HEPATITIS B SURFACE ANTIGEN (RECOMBINANT) [Suspect]
     Active Substance: HEPATITIS A VACCINE, INACTIVATED\HEPATITIS B VIRUS VACCINE
     Indication: PROPHYLAXIS
     Route: 030
  2. CLARITHROMYCIN. [Suspect]
     Active Substance: CLARITHROMYCIN
     Indication: URINARY TRACT INFECTION
     Route: 065
  3. HYDROXOCOBALAMIN [Suspect]
     Active Substance: HYDROXOCOBALAMIN
     Indication: PRODUCT USED FOR UNKNOWN INDICATION
     Route: 065

REACTIONS (4)
  - Hypoaesthesia [Not Recovered/Not Resolved]
  - Myelitis transverse [Not Recovered/Not Resolved]
  - Burning sensation [Not Recovered/Not Resolved]
  - Multiple sclerosis [Not Recovered/Not Resolved]
